FAERS Safety Report 17393585 (Version 1)
Quarter: 2020Q1

REPORT INFORMATION
  Report Type: Spontaneous
  Country: CN (occurrence: CN)
  Receive Date: 20200208
  Receipt Date: 20200208
  Transmission Date: 20200409
  Serious: Yes (Other)
  Sender: FDA-Public Use
  Company Number: NVSC2020CN032040

PATIENT
  Sex: Male

DRUGS (1)
  1. PAZOPANIB [Suspect]
     Active Substance: PAZOPANIB
     Indication: RENAL CANCER
     Dosage: UNK
     Route: 048
     Dates: start: 20200107

REACTIONS (7)
  - Hyperhidrosis [Unknown]
  - Ascites [Unknown]
  - Decreased appetite [Unknown]
  - Abdominal distension [Unknown]
  - Pleural effusion [Unknown]
  - Renal disorder [Unknown]
  - Metastases to lung [Unknown]
